FAERS Safety Report 5139857-8 (Version None)
Quarter: 2006Q4

REPORT INFORMATION
  Report Type: 
  Country: None (occurrence: None)
  Receive Date: 20061025
  Receipt Date: 20061025
  Transmission Date: 20070319
  Serious: Yes (Hospitalization)
  Sender: FDA-Public Use
  Company Number: None

PATIENT
  Age: 51 Year
  Sex: Male
  Weight: 108.8633 kg

DRUGS (2)
  1. LOSARTAN POSTASSIUM [Suspect]
     Indication: HYPERTENSION
     Dosage: 25 MG PO QD
     Route: 048
  2. METOPROLOL TARTRATE [Suspect]
     Dosage: 100 MCG PO BID
     Route: 048

REACTIONS (7)
  - ATRIOVENTRICULAR BLOCK FIRST DEGREE [None]
  - BRADYCARDIA [None]
  - ELECTROCARDIOGRAM CHANGE [None]
  - ELECTROCARDIOGRAM T WAVE PEAKED [None]
  - FALL [None]
  - HYPERKALAEMIA [None]
  - SYNCOPE [None]
